FAERS Safety Report 4748843-9 (Version None)
Quarter: 2005Q3

REPORT INFORMATION
  Report Type: 
  Country: None (occurrence: None)
  Receive Date: 20050819
  Receipt Date: 20050516
  Transmission Date: 20060218
  Serious: Yes (Other)
  Sender: FDA-Public Use
  Company Number: US-GLAXOSMITHKLINE-A0558797A

PATIENT
  Age: 49 Year
  Sex: Female
  Weight: 50.9 kg

DRUGS (8)
  1. WELLBUTRIN [Suspect]
     Indication: DEPRESSION
     Route: 048
     Dates: start: 20030722, end: 20040919
  2. SEROQUEL [Suspect]
     Route: 048
     Dates: start: 20040825, end: 20040910
  3. SYNTHROID [Concomitant]
     Indication: HYPOTHYROIDISM
     Dosage: .05MG PER DAY
     Route: 048
     Dates: start: 19980101
  4. MENEST [Concomitant]
     Indication: MENOPAUSE
     Dosage: 1TAB PER DAY
     Route: 048
     Dates: start: 20020101
  5. DOXEPIN HCL [Concomitant]
     Indication: DEPRESSION
     Dosage: 20MG AT NIGHT
     Route: 048
     Dates: start: 20040108, end: 20041112
  6. AMBIEN [Concomitant]
     Indication: INSOMNIA
     Dosage: 10MG AS REQUIRED
     Route: 048
     Dates: start: 20030701, end: 20041107
  7. LORAZEPAM [Concomitant]
     Indication: ANXIETY
     Dosage: .5MG AS REQUIRED
     Route: 048
     Dates: start: 20040630, end: 20041001
  8. ZOMIG [Concomitant]
     Indication: MIGRAINE

REACTIONS (15)
  - AFFECTIVE DISORDER [None]
  - AMNESIA [None]
  - AURA [None]
  - BIPOLAR II DISORDER [None]
  - CONFUSIONAL STATE [None]
  - CONVULSION [None]
  - FALL [None]
  - FATIGUE [None]
  - LOSS OF CONSCIOUSNESS [None]
  - MEMORY IMPAIRMENT [None]
  - NAUSEA [None]
  - NECK PAIN [None]
  - PARAESTHESIA [None]
  - TONIC CONVULSION [None]
  - TREMOR [None]
